FAERS Safety Report 5296109-3 (Version None)
Quarter: 2007Q2

REPORT INFORMATION
  Report Type: 
  Country: None (occurrence: None)
  Receive Date: 20070406
  Receipt Date: 20070322
  Transmission Date: 20071010
  Serious: Yes (Life-Threatening, Hospitalization)
  Sender: FDA-Public Use
  Company Number: 07-000649

PATIENT
  Age: 41 Year
  Sex: Male

DRUGS (1)
  1. DURICEF [Suspect]
     Indication: PHARYNGOLARYNGEAL PAIN
     Dosage: 1 SINGLE DOSE, ORAL
     Route: 048
     Dates: start: 20070208, end: 20070208

REACTIONS (2)
  - ANAPHYLACTIC SHOCK [None]
  - NAUSEA [None]
